FAERS Safety Report 16702303 (Version 3)
Quarter: 2019Q3

REPORT INFORMATION
  Report Type: Report from Study
  Country: DE (occurrence: DE)
  Receive Date: 20190814
  Receipt Date: 20190920
  Transmission Date: 20191004
  Serious: Yes (Other)
  Sender: FDA-Public Use
  Company Number: DE-AUROBINDO-AUR-APL-2019-054372

PATIENT
  Age: 45 Year
  Sex: Female

DRUGS (6)
  1. CELECOXIB. [Suspect]
     Active Substance: CELECOXIB
     Indication: PRODUCT USED FOR UNKNOWN INDICATION
     Dosage: UNK
     Route: 065
  2. DESOGESTREL FILM COATED TABLETS [Suspect]
     Active Substance: DESOGESTREL
     Indication: CONTRACEPTION
     Dosage: UNK
     Route: 048
  3. NORETHINDRONE. [Suspect]
     Active Substance: NORETHINDRONE
     Indication: PRODUCT USED FOR UNKNOWN INDICATION
     Dosage: UNK
     Route: 065
  4. IBUPROFEN. [Suspect]
     Active Substance: IBUPROFEN
     Indication: PRODUCT USED FOR UNKNOWN INDICATION
     Dosage: UNK
     Route: 065
  5. ETHINYLESTRADIOL [Suspect]
     Active Substance: ETHINYL ESTRADIOL
     Indication: CONTRACEPTION
     Dosage: UNK
     Route: 065
  6. PETADOLEX [Suspect]
     Active Substance: HERBALS
     Indication: MIGRAINE PROPHYLAXIS
     Dosage: UNK
     Route: 065

REACTIONS (15)
  - Jaundice [Unknown]
  - Hepatitis acute [Unknown]
  - Alanine aminotransferase increased [Unknown]
  - Cholestasis [Unknown]
  - Faeces discoloured [Unknown]
  - Malaise [Unknown]
  - Eczema [Unknown]
  - Aspartate aminotransferase increased [Unknown]
  - Polyp [Unknown]
  - Pruritus [Unknown]
  - Liver injury [Unknown]
  - Cholelithiasis [Unknown]
  - Cholecystitis [Unknown]
  - Abdominal discomfort [Unknown]
  - Chromaturia [Unknown]
